FAERS Safety Report 21986442 (Version 1)
Quarter: 2023Q1

REPORT INFORMATION
  Report Type: Report from Study
  Country: PH (occurrence: PH)
  Receive Date: 20230213
  Receipt Date: 20230213
  Transmission Date: 20230417
  Serious: Yes (Hospitalization)
  Sender: FDA-Public Use
  Company Number: PH-002147023-NVSC2023PH027933

PATIENT
  Age: 74 Year

DRUGS (1)
  1. ENTRESTO [Suspect]
     Active Substance: SACUBITRIL\VALSARTAN
     Indication: Cardiac disorder
     Dosage: 1 DOSAGE FORM, BID (50 MG)
     Route: 048

REACTIONS (9)
  - Cardiac failure [Unknown]
  - Acute kidney injury [Unknown]
  - Coronary artery disease [Unknown]
  - Chronic kidney disease [Unknown]
  - Diabetic nephropathy [Unknown]
  - Cardiorenal syndrome [Unknown]
  - Dehydration [Unknown]
  - Type 2 diabetes mellitus [Unknown]
  - Pneumonia [Unknown]
